FAERS Safety Report 8607429 (Version 2)
Quarter: 2013Q2

REPORT INFORMATION
  Report Type: Spontaneous
  Country: US (occurrence: US)
  Receive Date: 20120611
  Receipt Date: 20130617
  Transmission Date: 20140414
  Serious: Yes (Hospitalization, Disabling, Other)
  Sender: FDA-Public Use
  Company Number: US-ASTRAZENECA-2012SE34879

PATIENT
  Age: 53 Year
  Sex: Male
  Weight: 106.6 kg

DRUGS (7)
  1. NEXIUM [Suspect]
     Route: 048
  2. NEXIUM [Suspect]
     Dosage: ONCE
     Route: 048
  3. ATORVASTATIN [Concomitant]
  4. SINGULAIR [Concomitant]
  5. NIFEDIPINE [Concomitant]
  6. DONEPEZIL [Concomitant]
  7. LISINOPRIL [Concomitant]

REACTIONS (4)
  - Colon cancer [Unknown]
  - Ankle fracture [Unknown]
  - Osteoporosis [Unknown]
  - Multiple fractures [Unknown]
